FAERS Safety Report 15961559 (Version 1)
Quarter: 2019Q1

REPORT INFORMATION
  Report Type: Spontaneous
  Country: US (occurrence: US)
  Receive Date: 20190214
  Receipt Date: 20190214
  Transmission Date: 20190417
  Serious: No
  Sender: FDA-Public Use
  Company Number: US-FERRINGPH-2018FE05782

PATIENT
  Age: 54 Year
  Sex: Male
  Weight: 89 kg

DRUGS (1)
  1. NOVAREL [Suspect]
     Active Substance: CHORIOGONADOTROPIN ALFA
     Indication: INFERTILITY MALE
     Dosage: 5000 IU, 3 TIMES WEEKLY
     Route: 065
     Dates: start: 201809

REACTIONS (2)
  - Drug ineffective [Unknown]
  - Off label use [Unknown]

NARRATIVE: CASE EVENT DATE: 201809
